FAERS Safety Report 25778503 (Version 1)
Quarter: 2025Q3

REPORT INFORMATION
  Report Type: Spontaneous
  Country: EU (occurrence: EU)
  Receive Date: 20250909
  Receipt Date: 20250909
  Transmission Date: 20251021
  Serious: Yes (Other)
  Sender: PFIZER
  Company Number: EU-PFIZER INC-202500176626

PATIENT
  Sex: Male

DRUGS (4)
  1. LINEZOLID [Suspect]
     Active Substance: LINEZOLID
  2. DAPTOMYCIN [Suspect]
     Active Substance: DAPTOMYCIN
  3. LEVOFLOXACIN [Suspect]
     Active Substance: LEVOFLOXACIN
  4. CASPOFUNGIN [Suspect]
     Active Substance: CASPOFUNGIN

REACTIONS (1)
  - Neuropathy peripheral [Unknown]
